FAERS Safety Report 14844053 (Version 1)
Quarter: 2018Q2

REPORT INFORMATION
  Report Type: Spontaneous
  Country: US (occurrence: US)
  Receive Date: 20180503
  Receipt Date: 20180503
  Transmission Date: 20180711
  Serious: Yes (Hospitalization)
  Sender: FDA-Public Use
  Company Number: US-JAZZ-2018-US-006963

PATIENT
  Sex: Female

DRUGS (3)
  1. PRIALT [Suspect]
     Active Substance: ZICONOTIDE ACETATE
     Indication: FIBROMYALGIA
     Dosage: BOLUS DOSE OF 2.9 ?G AT 7AM AND 7PM
     Route: 037
     Dates: start: 201702
  2. PRIALT [Suspect]
     Active Substance: ZICONOTIDE ACETATE
     Indication: BURSITIS
     Dosage: DECREASED DOSE
  3. PRIALT [Suspect]
     Active Substance: ZICONOTIDE ACETATE
     Indication: POST LAMINECTOMY SYNDROME
     Dosage: 0.146 ?G, QH
     Route: 037
     Dates: start: 201702

REACTIONS (6)
  - Dyspnoea [Recovered/Resolved]
  - Migraine [Not Recovered/Not Resolved]
  - Contusion [Not Recovered/Not Resolved]
  - Chest pain [Recovered/Resolved]
  - Nausea [Not Recovered/Not Resolved]
  - Muscular weakness [Not Recovered/Not Resolved]

NARRATIVE: CASE EVENT DATE: 2017
